FAERS Safety Report 6519198-4 (Version None)
Quarter: 2009Q4

REPORT INFORMATION
  Report Type: 
  Country: None (occurrence: None)
  Receive Date: 20091228
  Receipt Date: 20091223
  Transmission Date: 20100525
  Serious: Yes (Death)
  Sender: FDA-Public Use
  Company Number: US-SANOFI-AVENTIS-2009SA010969

PATIENT
  Age: 39 Year
  Sex: Male

DRUGS (2)
  1. PLAVIX [Suspect]
     Route: 048
     Dates: start: 20091001
  2. ASPIRIN [Concomitant]

REACTIONS (2)
  - ABDOMINAL PAIN UPPER [None]
  - DEATH [None]
